FAERS Safety Report 5309162-5 (Version None)
Quarter: 2007Q2

REPORT INFORMATION
  Report Type: 
  Country: None (occurrence: None)
  Receive Date: 20070423
  Receipt Date: 20070413
  Transmission Date: 20071010
  Serious: Yes (Hospitalization)
  Sender: FDA-Public Use
  Company Number: 163-21880-07020044

PATIENT
  Age: 47 Year
  Sex: Male

DRUGS (14)
  1. THALOMID [Suspect]
     Indication: MULTIPLE MYELOMA
     Dosage: SEE IMAGE
     Route: 048
     Dates: start: 20050512, end: 20070101
  2. THALOMID [Suspect]
     Indication: MULTIPLE MYELOMA
     Dosage: SEE IMAGE
     Route: 048
     Dates: start: 20070301
  3. REVLIMID [Suspect]
     Indication: MULTIPLE MYELOMA
     Dosage: 25 MG, DAILY X21 DAYS, ORAL
     Route: 048
     Dates: start: 20070120, end: 20070210
  4. DEXAMETHASONE TAB [Suspect]
     Indication: MULTIPLE MYELOMA
     Dosage: UNKNOWN, DAILY X4 DAYS, ORAL
     Route: 048
     Dates: start: 20050501
  5. OMEPRAZOLE [Concomitant]
  6. VALACYCLOVIR (ANTIBIOTICS) [Concomitant]
  7. FEXOFENADINE HCL [Concomitant]
  8. PENICILLIN-VK [Concomitant]
  9. METOPROLOL TARTRATE [Concomitant]
  10. GABAPENTIN [Concomitant]
  11. PAROXETINE [Concomitant]
  12. DOCUSATE PLUS SENNA (SENOKOT-S) [Concomitant]
  13. BACTRIM DS [Concomitant]
  14. OXYCODONE HCL [Concomitant]

REACTIONS (5)
  - ADRENAL INSUFFICIENCY [None]
  - CARDIOVASCULAR DISORDER [None]
  - CONDITION AGGRAVATED [None]
  - CORONARY ARTERY OCCLUSION [None]
  - INAPPROPRIATE ANTIDIURETIC HORMONE SECRETION [None]
